FAERS Safety Report 17069949 (Version 1)
Quarter: 2019Q4

REPORT INFORMATION
  Report Type: Spontaneous
  Country: PL (occurrence: PL)
  Receive Date: 20191125
  Receipt Date: 20191125
  Transmission Date: 20200122
  Serious: Yes (Life-Threatening)
  Sender: FDA-Public Use
  Company Number: PL-ACCORD-161866

PATIENT
  Age: 68 Year
  Sex: Female
  Weight: 72 kg

DRUGS (1)
  1. PACLITAXEL ACCORD [Suspect]
     Active Substance: PACLITAXEL
     Indication: PRODUCT USED FOR UNKNOWN INDICATION
     Route: 042
     Dates: start: 20190305, end: 20190305

REACTIONS (2)
  - Acute coronary syndrome [Recovering/Resolving]
  - Chest pain [Recovering/Resolving]

NARRATIVE: CASE EVENT DATE: 20190305
